FAERS Safety Report 10097100 (Version 2)
Quarter: 2014Q2

REPORT INFORMATION
  Report Type: Spontaneous
  Country: US (occurrence: US)
  Receive Date: 20140422
  Receipt Date: 20140422
  Transmission Date: 20141212
  Serious: No
  Sender: FDA-Public Use
  Company Number: US-GILEAD-2012-0064809

PATIENT
  Age: 46 Year
  Sex: Female

DRUGS (4)
  1. LETAIRIS [Suspect]
     Indication: CONGENITAL ANOMALY
     Dosage: 10 MG, QD
     Route: 048
     Dates: start: 20120321
  2. LETAIRIS [Suspect]
     Indication: HEART DISEASE CONGENITAL
  3. LETAIRIS [Suspect]
     Indication: ATRIAL SEPTAL DEFECT
  4. ADCIRCA [Concomitant]

REACTIONS (1)
  - Menstruation delayed [Unknown]
